FAERS Safety Report 4890510-5 (Version None)
Quarter: 2006Q1

REPORT INFORMATION
  Report Type: 
  Country: None (occurrence: None)
  Receive Date: 20060123
  Receipt Date: 20060111
  Transmission Date: 20060701
  Serious: Yes (Other)
  Sender: FDA-Public Use
  Company Number: 220804

PATIENT
  Age: 36 Year
  Sex: Male

DRUGS (1)
  1. RAPTIVA [Suspect]
     Indication: PSORIASIS
     Dosage: 0.9 ML, 1/WEEK, SUBCUTANEOUS
     Route: 058
     Dates: start: 20051214, end: 20051228

REACTIONS (6)
  - DYSGEUSIA [None]
  - DYSPHEMIA [None]
  - FACIAL PAIN [None]
  - FACIAL PALSY [None]
  - HEADACHE [None]
  - WHITE BLOOD CELL COUNT INCREASED [None]
